FAERS Safety Report 5897590-9 (Version None)
Quarter: 2008Q3

REPORT INFORMATION
  Report Type: 
  Country: None (occurrence: None)
  Receive Date: 20080829
  Receipt Date: 20080610
  Transmission Date: 20090109
  Serious: Yes (Other)
  Sender: FDA-Public Use
  Company Number: PHEH2008US05325

PATIENT
  Age: 68 Year
  Sex: Male
  Weight: 83 kg

DRUGS (8)
  1. EXJADE [Suspect]
     Indication: IRON OVERLOAD
     Dosage: ORAL : 20 MG/KG DAY, ORAL
     Route: 048
     Dates: start: 20080506, end: 20080513
  2. EXJADE [Suspect]
     Indication: MYELODYSPLASTIC SYNDROME
     Dosage: ORAL : 20 MG/KG DAY, ORAL
     Route: 048
     Dates: start: 20080506, end: 20080513
  3. UROCIT-K (POTASSIUM CITRATE) [Concomitant]
  4. LASIX [Concomitant]
  5. ALLOPURINOL [Concomitant]
  6. TIMOLOL (TIMOLOL) EYE DROPS [Concomitant]
  7. NOVOLOG MIX (INSULIN ASPART, PROTAMINE INSULIN ASPART) [Concomitant]
  8. DECITABINE (DECITABINE) [Concomitant]

REACTIONS (6)
  - ALANINE AMINOTRANSFERASE INCREASED [None]
  - FATIGUE [None]
  - HAEMATOCRIT DECREASED [None]
  - HAEMOGLOBIN DECREASED [None]
  - PANCYTOPENIA [None]
  - WHITE BLOOD CELL COUNT DECREASED [None]
